FAERS Safety Report 6952500-8 (Version None)
Quarter: 2010Q3

REPORT INFORMATION
  Report Type: 
  Country: None (occurrence: None)
  Receive Date: 20100829
  Receipt Date: 20100506
  Transmission Date: 20110219
  Serious: No
  Sender: FDA-Public Use
  Company Number: US-ABBOTT-10P-163-0642887-00

PATIENT
  Sex: Male

DRUGS (4)
  1. NIASPAN [Suspect]
     Indication: HYPERLIPIDAEMIA
     Dosage: 500 MG DAILY AT BEDTIME
     Dates: start: 20100305, end: 20100319
  2. NIASPAN [Suspect]
     Indication: HYPERLIPIDAEMIA
     Dosage: 1000 MG DAILY AT BEDTIME
  3. NIASPAN [Suspect]
     Dosage: 1 1/2- 1000 MG TABLET DAILY AT BEDTIME
     Dates: start: 20100423, end: 20100505
  4. NIASPAN [Suspect]
     Dosage: 1500 MG DAILY AT BEDTIME

REACTIONS (4)
  - ERYTHEMA [None]
  - FLUSHING [None]
  - PRURITUS [None]
  - SKIN BURNING SENSATION [None]
